FAERS Safety Report 6579353-4 (Version None)
Quarter: 2010Q1

REPORT INFORMATION
  Report Type: 
  Country: None (occurrence: None)
  Receive Date: 20100212
  Receipt Date: 20100205
  Transmission Date: 20100710
  Serious: Yes (Hospitalization)
  Sender: FDA-Public Use
  Company Number: FR-WYE-G05516410

PATIENT
  Sex: Female

DRUGS (11)
  1. TAZOCILLINE [Suspect]
     Route: 042
     Dates: start: 20091029, end: 20091116
  2. NEURONTIN [Concomitant]
     Route: 048
  3. CONTRAMAL [Concomitant]
     Route: 048
  4. PLAVIX [Concomitant]
     Route: 048
  5. OFLOCET [Concomitant]
     Route: 048
  6. OGASTORO [Concomitant]
     Route: 048
  7. TRANXENE [Concomitant]
     Route: 048
  8. PROZAC [Concomitant]
     Route: 048
  9. ZYPREXA [Concomitant]
     Route: 048
  10. VANCOMYCIN [Suspect]
     Route: 042
     Dates: start: 20091029, end: 20091116
  11. CLONAZEPAM [Concomitant]
     Route: 048

REACTIONS (2)
  - AGRANULOCYTOSIS [None]
  - MIXED LIVER INJURY [None]
